FAERS Safety Report 9012611 (Version 1)
Quarter: 2013Q1

REPORT INFORMATION
  Report Type: Spontaneous
  Country: SI (occurrence: SI)
  Receive Date: 20130114
  Receipt Date: 20130114
  Transmission Date: 20140127
  Serious: Yes (Hospitalization)
  Sender: FDA-Public Use
  Company Number: SI-ABBOTT-12P-261-1007767-00

PATIENT
  Sex: Male
  Weight: 71 kg

DRUGS (4)
  1. PROPAFENONE [Suspect]
     Indication: ATRIAL FIBRILLATION
     Dates: start: 20061228, end: 20111122
  2. PROPAFENONE [Suspect]
     Dates: start: 20070103, end: 20070114
  3. PROPAFENONE [Suspect]
     Dates: start: 20111116, end: 20111122
  4. SOTALOL [Concomitant]
     Indication: ATRIAL FIBRILLATION
     Dates: start: 2007, end: 2011

REACTIONS (2)
  - Cholestatic liver injury [Recovered/Resolved]
  - Cholestatic liver injury [Recovered/Resolved]
